APPROVED DRUG PRODUCT: HYDROXYUREA
Active Ingredient: HYDROXYUREA
Strength: 500MG
Dosage Form/Route: CAPSULE;ORAL
Application: A074476 | Product #001
Applicant: ROXANE LABORATORIES INC
Approved: Aug 18, 1995 | RLD: No | RS: No | Type: DISCN